FAERS Safety Report 7720347-0 (Version None)
Quarter: 2011Q3

REPORT INFORMATION
  Report Type: 
  Country: None (occurrence: None)
  Receive Date: 20110831
  Receipt Date: 20110825
  Transmission Date: 20111222
  Serious: Yes (Other)
  Sender: FDA-Public Use
  Company Number: US-PFIZER INC-2011143921

PATIENT
  Sex: Male

DRUGS (5)
  1. HYDROCODONE [Concomitant]
     Indication: PAIN
     Dosage: UNK
     Dates: start: 20040826
  2. PROTONIX [Concomitant]
     Indication: GASTROOESOPHAGEAL REFLUX DISEASE
     Dosage: UNK
     Dates: start: 20050101, end: 20081211
  3. AMBIEN [Concomitant]
     Indication: INSOMNIA
     Dosage: UNK
     Dates: start: 20041119, end: 20090601
  4. CHANTIX [Suspect]
     Indication: SMOKING CESSATION THERAPY
     Dosage: 0.5 MG, UNK
     Dates: start: 20080502, end: 20080618
  5. CHANTIX [Suspect]
     Dosage: 1 MG, UNK
     Dates: start: 20091019, end: 20091209

REACTIONS (4)
  - MENTAL DISORDER [None]
  - DEPRESSION [None]
  - SUICIDAL BEHAVIOUR [None]
  - ANXIETY [None]
